FAERS Safety Report 7406602-2 (Version None)
Quarter: 2011Q2

REPORT INFORMATION
  Report Type: 
  Country: None (occurrence: None)
  Receive Date: 20110401
  Receipt Date: 20110318
  Transmission Date: 20111010
  Serious: Yes (Hospitalization)
  Sender: FDA-Public Use
  Company Number: 029550

PATIENT
  Sex: Female

DRUGS (7)
  1. SERTRALINE HYDROCHLORIDE [Concomitant]
  2. BUPROPION HYDROCHLORIDE [Concomitant]
  3. CIMZIA [Suspect]
     Indication: CROHN'S DISEASE
     Dosage: (SUBCUTANEOUS)
     Route: 058
     Dates: start: 20090701, end: 20090101
  4. HUMIRA [Suspect]
     Indication: CROHN'S DISEASE
     Dosage: SEE IMAGE
     Route: 058
     Dates: start: 20110119, end: 20110119
  5. HUMIRA [Suspect]
     Indication: CROHN'S DISEASE
     Dosage: SEE IMAGE
     Route: 058
     Dates: start: 20080101, end: 20090101
  6. HUMIRA [Suspect]
     Indication: CROHN'S DISEASE
     Dosage: SEE IMAGE
     Route: 058
     Dates: start: 20110207, end: 20110207
  7. VERAPAMIL [Concomitant]

REACTIONS (6)
  - WEIGHT INCREASED [None]
  - INJECTION SITE HAEMATOMA [None]
  - DEHYDRATION [None]
  - OEDEMA [None]
  - PNEUMONIA [None]
  - INJECTION SITE REACTION [None]
